FAERS Safety Report 9785279 (Version 2)
Quarter: 2014Q1

REPORT INFORMATION
  Report Type: Spontaneous
  Country: US (occurrence: US)
  Receive Date: 20131227
  Receipt Date: 20140129
  Transmission Date: 20141002
  Serious: Yes (Other)
  Sender: FDA-Public Use
  Company Number: US-B.I. PHARMACEUTICALS,INC./RIDGEFIELD-2013-BI-42527BP

PATIENT
  Age: 76 Year
  Sex: Female
  Weight: 66.22 kg

DRUGS (18)
  1. PRADAXA [Suspect]
     Indication: ATRIAL FIBRILLATION
     Dosage: 300 MG
     Route: 048
     Dates: start: 2013
  2. LEVOTHYROXINE [Concomitant]
     Indication: THYROID DISORDER
     Dosage: 125 MCG
     Route: 048
  3. CELEXA [Concomitant]
     Dosage: 40 MG
     Route: 048
  4. VIT D3 [Concomitant]
     Dosage: 100 U
  5. B12 [Concomitant]
     Route: 048
  6. MAALOX [Concomitant]
  7. METRONIDAZOLE [Concomitant]
     Dosage: 500 MG
     Route: 048
  8. ATENOLOL [Concomitant]
     Dosage: 25 MG
     Route: 048
  9. PRAVASTATIN [Concomitant]
     Dosage: 40 MG
     Route: 048
  10. CLONAZEPAM [Concomitant]
     Dosage: 1 MG
     Route: 048
  11. FAMOTIDINE [Concomitant]
     Dosage: 40 MG
     Route: 048
  12. DICYCLOMINE [Concomitant]
     Dosage: 40 MG
     Route: 048
  13. SEROQUEL 25MG [Concomitant]
     Dosage: 25 MG
     Route: 048
  14. ALEVE [Concomitant]
  15. PRISTIQ [Concomitant]
     Dosage: 50 MG
     Route: 048
  16. PROBIOTIC CAPSULE [Concomitant]
     Route: 048
  17. ALIGN [Concomitant]
     Route: 048
  18. TYLENOL [Concomitant]
     Indication: PAIN
     Route: 048

REACTIONS (1)
  - Feeling cold [Recovered/Resolved]
